FAERS Safety Report 5191918-3 (Version None)
Quarter: 2006Q4

REPORT INFORMATION
  Report Type: 
  Country: None (occurrence: None)
  Receive Date: 20061227
  Receipt Date: 20060613
  Transmission Date: 20070319
  Serious: Yes (Other)
  Sender: FDA-Public Use
  Company Number: 2006UW12633

PATIENT
  Sex: Female

DRUGS (2)
  1. TOPROL-XL [Suspect]
     Dosage: 3 DAILY
     Route: 048
  2. ZESTRIL [Suspect]
     Dosage: 2 DAILY
     Route: 048

REACTIONS (5)
  - CARDIAC DISORDER [None]
  - CEREBROVASCULAR ACCIDENT [None]
  - DIABETES MELLITUS [None]
  - MYOCARDIAL INFARCTION [None]
  - NEOPLASM MALIGNANT [None]
